FAERS Safety Report 5213425-1 (Version None)
Quarter: 2007Q1

REPORT INFORMATION
  Report Type: 
  Country: None (occurrence: None)
  Receive Date: 20070119
  Receipt Date: 20070110
  Transmission Date: 20070707
  Serious: Yes (Life-Threatening, Other)
  Sender: FDA-Public Use
  Company Number: US-MERCK-0612USA00944

PATIENT
  Age: 65 Year
  Sex: Female
  Weight: 80 kg

DRUGS (2)
  1. JANUVIA [Suspect]
     Indication: DIABETES MELLITUS
     Route: 048
     Dates: start: 20061101, end: 20061101
  2. METFORMIN [Concomitant]
     Route: 065

REACTIONS (1)
  - DYSPNOEA [None]
